FAERS Safety Report 21340444 (Version 2)
Quarter: 2025Q2

REPORT INFORMATION
  Report Type: Spontaneous
  Country: DE (occurrence: DE)
  Receive Date: 20220916
  Receipt Date: 20250528
  Transmission Date: 20250716
  Serious: Yes (Other)
  Sender: AUROBINDO
  Company Number: DE-MLMSERVICE-20200121-2127588-2

PATIENT
  Age: 22 Year
  Sex: Male

DRUGS (6)
  1. RIBAVIRIN [Suspect]
     Active Substance: RIBAVIRIN
     Indication: Hepatitis E
     Dosage: 200 MILLIGRAM, ONCE A DAY
     Route: 065
  2. RIBAVIRIN [Suspect]
     Active Substance: RIBAVIRIN
     Dosage: 200 MILLIGRAM, ONCE A DAY (INCREASED TO A DOSE OF 200?400 MG/D)
     Route: 065
  3. RIBAVIRIN [Suspect]
     Active Substance: RIBAVIRIN
     Route: 065
  4. RIBAVIRIN [Suspect]
     Active Substance: RIBAVIRIN
     Dosage: 400 MILLIGRAM, ONCE A DAY (INCREASED TO A DOSE OF 200?400 MG/D)
     Route: 065
  5. MABTHERA [Suspect]
     Active Substance: RITUXIMAB
     Indication: Immune thrombocytopenia
     Route: 065
     Dates: start: 201505, end: 201506
  6. MABTHERA [Suspect]
     Active Substance: RITUXIMAB
     Indication: Atypical haemolytic uraemic syndrome

REACTIONS (6)
  - Leukopenia [Unknown]
  - Hepatitis E [Unknown]
  - Anaemia [Unknown]
  - Suspected transmission of an infectious agent via product [Unknown]
  - Off label use [Unknown]
  - Therapy non-responder [Unknown]
